FAERS Safety Report 4650424-2 (Version None)
Quarter: 2005Q2

REPORT INFORMATION
  Report Type: 
  Country: None (occurrence: None)
  Receive Date: 20050428
  Receipt Date: 20050413
  Transmission Date: 20051028
  Serious: Yes (Hospitalization)
  Sender: FDA-Public Use
  Company Number: 2005SP000182

PATIENT
  Age: 2 Year
  Sex: Female

DRUGS (1)
  1. XOPENEX [Suspect]
     Dosage: 0.63 MG;EVERY 4 HOURS; INHALATION
     Route: 055
     Dates: start: 20050101

REACTIONS (1)
  - BRADYCARDIA [None]
